FAERS Safety Report 21828102 (Version 1)
Quarter: 2023Q1

REPORT INFORMATION
  Report Type: Spontaneous
  Country: US (occurrence: US)
  Receive Date: 20230106
  Receipt Date: 20230106
  Transmission Date: 20230418
  Serious: Yes (Other)
  Sender: FDA-Public Use
  Company Number: US-TERSERA THERAPEUTICS LLC-2022TRS003997

PATIENT

DRUGS (14)
  1. PRIALT [Suspect]
     Active Substance: ZICONOTIDE ACETATE
     Indication: Spinal pain
     Dosage: 2.4 MICROGRAM PER DAY PRIALT TRIAL
     Route: 065
     Dates: start: 20210930
  2. PRIALT [Suspect]
     Active Substance: ZICONOTIDE ACETATE
     Dosage: 4.802 MICROGRAM PER DAY
     Route: 037
     Dates: start: 20220630
  3. PRIALT [Suspect]
     Active Substance: ZICONOTIDE ACETATE
     Dosage: 7.205 MICROGRAM PER DAY
     Route: 037
     Dates: start: 20220713
  4. PRIALT [Suspect]
     Active Substance: ZICONOTIDE ACETATE
     Dosage: 9.605 MICROGRAM PER DAY
     Route: 037
     Dates: start: 20220727
  5. PRIALT [Suspect]
     Active Substance: ZICONOTIDE ACETATE
     Dosage: 13 MICROGRAM PER DAY
     Route: 037
     Dates: start: 202209
  6. PRIALT [Suspect]
     Active Substance: ZICONOTIDE ACETATE
     Dosage: 12.005 MICROGRAM PER DAY
     Route: 037
     Dates: start: 20220909
  7. PRIALT [Suspect]
     Active Substance: ZICONOTIDE ACETATE
     Dosage: 13.22 MICROGRAM PER DAY
     Route: 037
     Dates: start: 20220914
  8. PRIALT [Suspect]
     Active Substance: ZICONOTIDE ACETATE
     Dosage: 11 MICROGRAM PER DAY
     Route: 037
     Dates: start: 20220921
  9. PRIALT [Suspect]
     Active Substance: ZICONOTIDE ACETATE
     Dosage: 2.5 MICROGRAM PER DAY
     Route: 037
     Dates: start: 20220919
  10. PRIALT [Suspect]
     Active Substance: ZICONOTIDE ACETATE
     Dosage: 2.5 MICROGRAM PER DAY
     Route: 037
     Dates: start: 20220921
  11. PRIALT [Suspect]
     Active Substance: ZICONOTIDE ACETATE
     Dosage: 05/ 09 MICROGRAM PER DAY
     Route: 037
     Dates: start: 20220921
  12. PRIALT [Suspect]
     Active Substance: ZICONOTIDE ACETATE
     Dosage: 15 MICROGRAM PER DAY
     Route: 037
     Dates: start: 20220921
  13. FENTANYL [Suspect]
     Active Substance: FENTANYL
     Indication: Spinal pain
     Dosage: 75 MG
     Route: 037
  14. OXYCODONE [Suspect]
     Active Substance: OXYCODONE
     Indication: Spinal pain
     Dosage: 30 MG, QID
     Route: 037

REACTIONS (8)
  - Hallucination, auditory [Recovered/Resolved]
  - Panic attack [Not Recovered/Not Resolved]
  - Mental status changes [Not Recovered/Not Resolved]
  - Tremor [Recovered/Resolved]
  - Disorientation [Not Recovered/Not Resolved]
  - Confusional state [Not Recovered/Not Resolved]
  - Amnesia [Not Recovered/Not Resolved]
  - Off label use [Unknown]

NARRATIVE: CASE EVENT DATE: 20220901
